FAERS Safety Report 8920231 (Version 3)
Quarter: 2013Q2

REPORT INFORMATION
  Report Type: Spontaneous
  Country: DE (occurrence: DE)
  Receive Date: 20121122
  Receipt Date: 20130415
  Transmission Date: 20140414
  Serious: Yes (Death, Other)
  Sender: FDA-Public Use
  Company Number: DE-ROCHE-1156555

PATIENT
  Age: 80 Year
  Sex: Female

DRUGS (11)
  1. MABTHERA [Suspect]
     Indication: B-CELL LYMPHOMA
     Route: 065
     Dates: start: 20100324, end: 201007
  2. MABTHERA [Suspect]
     Route: 065
     Dates: start: 20110905
  3. BENDAMUSTINE [Concomitant]
     Indication: B-CELL LYMPHOMA
     Route: 065
     Dates: start: 20100324, end: 201007
  4. BENDAMUSTINE [Concomitant]
     Route: 065
     Dates: start: 20110905
  5. CYCLOPHOSPHAMID [Concomitant]
     Indication: B-CELL LYMPHOMA
     Route: 065
     Dates: start: 201107
  6. CYCLOPHOSPHAMID [Concomitant]
     Route: 065
     Dates: start: 20110905
  7. VINCRISTIN [Concomitant]
     Indication: B-CELL LYMPHOMA
     Route: 065
     Dates: start: 201107
  8. VINCRISTIN [Concomitant]
     Route: 065
     Dates: start: 20110905
  9. PREDNISONE [Concomitant]
     Indication: B-CELL LYMPHOMA
     Route: 065
     Dates: start: 201107
  10. PREDNISONE [Concomitant]
     Route: 065
     Dates: start: 20110905
  11. VALTREX [Concomitant]
     Route: 065
     Dates: start: 20110905

REACTIONS (4)
  - Neoplasm malignant [Fatal]
  - Cytomegalovirus colitis [Recovering/Resolving]
  - CD4/CD8 ratio decreased [Not Recovered/Not Resolved]
  - B-cell lymphoma recurrent [Not Recovered/Not Resolved]
